FAERS Safety Report 24898303 (Version 1)
Quarter: 2025Q1

REPORT INFORMATION
  Report Type: Spontaneous
  Country: PL (occurrence: PL)
  Receive Date: 20250129
  Receipt Date: 20250129
  Transmission Date: 20250409
  Serious: Yes (Other)
  Sender: AUROBINDO
  Company Number: PL-GRUNENTHAL-2025-100528

PATIENT
  Age: 89 Year
  Sex: Male

DRUGS (4)
  1. ROSUVASTATIN [Suspect]
     Active Substance: ROSUVASTATIN
     Indication: Chronic coronary syndrome
     Route: 065
  2. ASPIRIN [Concomitant]
     Active Substance: ASPIRIN
     Indication: Product use in unapproved indication
     Route: 065
  3. DOXAZOSIN [Concomitant]
     Active Substance: DOXAZOSIN MESYLATE
     Indication: Product use in unapproved indication
     Route: 065
  4. NEBIVOLOL [Concomitant]
     Active Substance: NEBIVOLOL
     Indication: Product use in unapproved indication
     Route: 065

REACTIONS (9)
  - Glomerulonephritis rapidly progressive [Recovering/Resolving]
  - Acute kidney injury [Unknown]
  - Asthenia [Unknown]
  - Arthralgia [Unknown]
  - Nausea [Unknown]
  - Urine output decreased [Unknown]
  - Vomiting [Unknown]
  - Chromaturia [Recovering/Resolving]
  - Decreased appetite [Unknown]
